FAERS Safety Report 18303259 (Version 2)
Quarter: 2020Q3

REPORT INFORMATION
  Report Type: Spontaneous
  Country: PL (occurrence: PL)
  Receive Date: 20200923
  Receipt Date: 20200924
  Transmission Date: 20201103
  Serious: Yes (Hospitalization)
  Sender: FDA-Public Use
  Company Number: PL-PFIZER INC-2020362286

PATIENT
  Age: 58 Year
  Sex: Male

DRUGS (11)
  1. ROSUVASTATIN CALCIUM. [Suspect]
     Active Substance: ROSUVASTATIN CALCIUM
     Dosage: 10 MG
     Route: 048
  2. SACUBITRIL/VALSARTAN [Suspect]
     Active Substance: SACUBITRIL\VALSARTAN
     Indication: CARDIAC FAILURE
     Dosage: 50 MG, UNKNOWN, 2 X 1 TAB
     Route: 065
  3. RAMIPRIL. [Suspect]
     Active Substance: RAMIPRIL
     Dosage: 5 MG, UNKNOWN (50%)
     Route: 048
  4. EPLERENONE. [Suspect]
     Active Substance: EPLERENONE
     Dosage: 25 MG, UNKNOWN (50%)
     Route: 065
  5. TORASEMIDE [Suspect]
     Active Substance: TORSEMIDE
     Dosage: 40 MG, UNK (2ND HOSPITALISATION)
     Route: 065
  6. FUROSEMIDE. [Suspect]
     Active Substance: FUROSEMIDE
     Dosage: 80 MG, (2ND HOSPITALISATION)
     Route: 065
  7. BISOPROLOL FUMARATE. [Suspect]
     Active Substance: BISOPROLOL FUMARATE
     Dosage: 5 MG
     Route: 065
  8. AMIODARONE HCL [Suspect]
     Active Substance: AMIODARONE HYDROCHLORIDE
     Dosage: 200 MG
     Route: 065
  9. FUROSEMIDE. [Suspect]
     Active Substance: FUROSEMIDE
     Dosage: 120 MG
     Route: 065
  10. TORASEMIDE [Suspect]
     Active Substance: TORSEMIDE
     Dosage: 5 MG
     Route: 065
  11. DABIGATRAN [Suspect]
     Active Substance: DABIGATRAN
     Dosage: 110 MG, DOSE TEXT: 110 MG, UNKNOWN (2 X 1 TABL)
     Route: 065

REACTIONS (3)
  - Cardiac failure [Unknown]
  - Pulmonary oedema [Unknown]
  - Atrial fibrillation [Unknown]

NARRATIVE: CASE EVENT DATE: 20190503
